FAERS Safety Report 4403557-X (Version None)
Quarter: 2004Q3

REPORT INFORMATION
  Report Type: 
  Country: None (occurrence: None)
  Receive Date: 20040721
  Receipt Date: 20040316
  Transmission Date: 20050211
  Serious: Yes (Hospitalization)
  Sender: FDA-Public Use
  Company Number: JPKYO-S-20040008

PATIENT
  Age: 71 Year
  Sex: Male

DRUGS (9)
  1. NAVELBINE [Suspect]
     Route: 042
     Dates: start: 20031117, end: 20031117
  2. TEGAFUR [Concomitant]
     Dates: start: 20031118, end: 20031122
  3. URACIL [Concomitant]
  4. LANSOPRAZOLE [Concomitant]
     Dates: start: 20030924
  5. HARNAL [Concomitant]
     Dates: start: 20030924
  6. ASPIRIN [Concomitant]
     Dates: start: 20030924
  7. PRAVASTATIN SODIUM [Concomitant]
  8. KADIAN [Concomitant]
     Dates: start: 20031110
  9. PREDONINE [Concomitant]
     Dates: start: 20031009, end: 20031018

REACTIONS (4)
  - HYPOXIA [None]
  - LYMPHOPENIA [None]
  - PNEUMOCYSTIS CARINII INFECTION [None]
  - PYREXIA [None]
